FAERS Safety Report 5603646-8 (Version None)
Quarter: 2008Q1

REPORT INFORMATION
  Report Type: 
  Country: None (occurrence: None)
  Receive Date: 20080123
  Receipt Date: 20080107
  Transmission Date: 20080703
  Serious: No
  Sender: FDA-Public Use
  Company Number: 021771

PATIENT
  Age: 15 Year
  Sex: Female

DRUGS (1)
  1. CLARAVIS [Suspect]
     Dosage: 30 MG, ORAL
     Route: 048
     Dates: start: 20071016, end: 20071127

REACTIONS (2)
  - PREGNANCY TEST FALSE POSITIVE [None]
  - TREATMENT NONCOMPLIANCE [None]
